FAERS Safety Report 5192032-3 (Version None)
Quarter: 2006Q4

REPORT INFORMATION
  Report Type: 
  Country: None (occurrence: None)
  Receive Date: 20061220
  Receipt Date: 20061211
  Transmission Date: 20070319
  Serious: Yes (Hospitalization)
  Sender: FDA-Public Use
  Company Number: 2006152040

PATIENT
  Age: 92 Year
  Sex: Female
  Weight: 58 kg

DRUGS (9)
  1. ATORVASTATIN CALCIUM [Suspect]
     Dosage: 80 MG (80 MG,1 IN 1 D), ORAL
     Route: 048
     Dates: start: 20060920
  2. AUGMENTIN '125' [Suspect]
     Indication: URINARY TRACT INFECTION
     Dosage: ORAL
     Route: 048
     Dates: start: 20061018
  3. ANTIBIOTICS (ANTIBIOTICS) [Suspect]
     Dosage: 1G; 2G (2 IN 1 D)
  4. ASPIRIN [Concomitant]
  5. SPIRICORT (PREDNISOLONE) [Concomitant]
  6. NEXIUM [Concomitant]
  7. TORSEMIDE [Concomitant]
  8. METOZOK - SLOW RELEASE (METOPROLOL SUCCINATE) [Concomitant]
  9. BETASERC (BETAHISTINE HYDROCHLORIDE) [Concomitant]

REACTIONS (26)
  - ANOREXIA [None]
  - AORTIC ARTERIOSCLEROSIS [None]
  - BILIARY TRACT DISORDER [None]
  - BRADYCARDIA [None]
  - BUNDLE BRANCH BLOCK LEFT [None]
  - ESCHERICHIA URINARY TRACT INFECTION [None]
  - GALLBLADDER DISORDER [None]
  - GALLBLADDER POLYP [None]
  - GENERAL PHYSICAL HEALTH DETERIORATION [None]
  - HAEMANGIOMA [None]
  - HAEMATOCHEZIA [None]
  - HAEMORRHOIDS [None]
  - HEPATIC CYST [None]
  - HYPERAESTHESIA [None]
  - HYPOTENSION [None]
  - JAUNDICE [None]
  - LIVER FUNCTION TEST ABNORMAL [None]
  - MALAISE [None]
  - NAUSEA [None]
  - RASH [None]
  - SEBORRHOEIC KERATOSIS [None]
  - URINARY TRACT INFECTION ENTEROCOCCAL [None]
  - VARICOSE VEIN [None]
  - VEIN DISORDER [None]
  - VENTRICULAR HYPERTROPHY [None]
  - WEIGHT DECREASED [None]
